FAERS Safety Report 7115344-2 (Version None)
Quarter: 2010Q4

REPORT INFORMATION
  Report Type: 
  Country: None (occurrence: None)
  Receive Date: 20101122
  Receipt Date: 20101112
  Transmission Date: 20110411
  Serious: Yes (Other)
  Sender: FDA-Public Use
  Company Number: JP-ASTRAZENECA-2010SE53410

PATIENT
  Age: 81 Year
  Sex: Female

DRUGS (1)
  1. IRESSA [Suspect]
     Route: 048
     Dates: end: 20101001

REACTIONS (1)
  - LIVER DISORDER [None]
